FAERS Safety Report 16906786 (Version 2)
Quarter: 2019Q4

REPORT INFORMATION
  Report Type: Other
  Country: BE (occurrence: BE)
  Receive Date: 20191011
  Receipt Date: 20191025
  Transmission Date: 20200122
  Serious: Yes (Other)
  Sender: FDA-Public Use
  Company Number: BE-APOTEX-2019AP023258

PATIENT
  Sex: Female

DRUGS (12)
  1. ZOLPIDEM [Suspect]
     Active Substance: ZOLPIDEM TARTRATE
     Indication: INSOMNIA
     Dosage: UNK, (SINCE SHE WAS 22, THE PATIENT TOOK SUCCESSIVELY MOGADON, TEMESTA, ROHYPNOL, LORAMET, STILNOCT)
     Route: 065
  2. TRANXENE [Suspect]
     Active Substance: CLORAZEPATE DIPOTASSIUM
     Indication: INSOMNIA
     Dosage: UNK, (SINCE SHE WAS 22, THE PATIENT TOOK SUCCESSIVELY MOGADON, TEMESTA, ROHYPNOL, LORAMET, STILNOCT)
     Route: 065
  3. TEMESTA                            /00273201/ [Suspect]
     Active Substance: LORAZEPAM
     Indication: INSOMNIA
     Dosage: UNK, (SINCE SHE WAS 22, THE PATIENT TOOK SUCCESSIVELY MOGADON, TEMESTA, ROHYPNOL, LORAMET, STILNOCT)
     Route: 065
  4. DEANXIT [Concomitant]
     Active Substance: FLUPENTIXOL DIHYDROCHLORIDE\MELITRACEN HYDROCHLORIDE
     Indication: DEPRESSION
     Dosage: UNK
     Route: 065
  5. SEROXAT [Suspect]
     Active Substance: PAROXETINE HYDROCHLORIDE
     Indication: DEPRESSION
     Dosage: UNK
     Route: 065
  6. MOGADON [Suspect]
     Active Substance: NITRAZEPAM
     Indication: INSOMNIA
     Dosage: UNK, (SINCE SHE WAS 22, THE PATIENT TOOK SUCCESSIVELY MOGADON,TEMESTA, ROHYPNOL, LORAMET,STILNOCT,)
     Route: 065
  7. FLUANXOL                           /00109702/ [Concomitant]
     Active Substance: FLUPENTIXOL
     Indication: PRODUCT USED FOR UNKNOWN INDICATION
     Dosage: UNK
     Route: 065
  8. PROLOPA [Concomitant]
     Active Substance: BENSERAZIDE\LEVODOPA
     Indication: PRODUCT USED FOR UNKNOWN INDICATION
     Dosage: UNK
     Route: 065
  9. ZYPREXA [Concomitant]
     Active Substance: OLANZAPINE
     Indication: PRODUCT USED FOR UNKNOWN INDICATION
     Dosage: UNK
     Route: 065
  10. ROHYPNOL [Suspect]
     Active Substance: FLUNITRAZEPAM
     Indication: INSOMNIA
     Dosage: UNK,, (SINCE SHE WAS 22, THE PATIENT TOOK SUCCESSIVELY MOGADON, TEMESTA, ROHYPNOL, LORAMET, STILNOC)
     Route: 065
  11. LORAMET [Suspect]
     Active Substance: LORMETAZEPAM
     Indication: INSOMNIA
     Dosage: UNK, (SINCE SHE WAS 22, THE PATIENT TOOK SUCCESSIVELY MOGADON, TEMESTA, ROHYPNOL, LORAMET, STILNOCT)
     Route: 065
  12. STILNOCT [Suspect]
     Active Substance: ZOLPIDEM TARTRATE
     Indication: INSOMNIA
     Dosage: UNK, (SINCE SHE WAS 22, THE PATIENT TOOK SUCCESSIVELY MOGADON, TEMESTA, ROHYPNOL, LORAMET, STILNOCT)
     Route: 065

REACTIONS (8)
  - Parkinson^s disease [Recovered/Resolved]
  - Suicidal ideation [Recovered/Resolved]
  - Aphasia [Unknown]
  - Depression [Recovered/Resolved]
  - Social avoidant behaviour [Recovered/Resolved]
  - Anxiety [Recovered/Resolved]
  - Memory impairment [Unknown]
  - Presenile dementia [Recovered/Resolved]
